FAERS Safety Report 15453765 (Version 2)
Quarter: 2018Q4

REPORT INFORMATION
  Report Type: Spontaneous
  Country: US (occurrence: US)
  Receive Date: 20181001
  Receipt Date: 20181022
  Transmission Date: 20190204
  Serious: No
  Sender: FDA-Public Use
  Company Number: US-TEIKOKU PHARMA USA-TPU2018-00545

PATIENT
  Sex: Female
  Weight: 61.29 kg

DRUGS (3)
  1. MEDICATIONS FOR BLOOD PRESSURE [Concomitant]
     Indication: BLOOD PRESSURE MEASUREMENT
  2. OTHER MEDICATIONS [Concomitant]
     Active Substance: UNSPECIFIED INGREDIENT
  3. LIDOCAINE PATCH [Suspect]
     Active Substance: LIDOCAINE
     Indication: BACK PAIN
     Dosage: USES 1-2 PATCHES. ONE ON THE LEFT SIDE OF BACK AND ONE ON RIGHT SIDE OF BACK OR ONE IN THE MIDDLE OF
     Dates: start: 201808

REACTIONS (2)
  - Cataract operation [Unknown]
  - Drug ineffective for unapproved indication [Unknown]
